FAERS Safety Report 4301937-4 (Version None)
Quarter: 2004Q1

REPORT INFORMATION
  Report Type: 
  Country: None (occurrence: None)
  Receive Date: 20040220
  Receipt Date: 20040204
  Transmission Date: 20041129
  Serious: Yes (Hospitalization)
  Sender: FDA-Public Use
  Company Number: T03-GER-04833-01

PATIENT
  Age: 83 Year
  Sex: Female

DRUGS (3)
  1. MEMANTINE HCL [Suspect]
     Indication: DEMENTIA
     Dosage: 10 MG QD PO
     Route: 048
     Dates: start: 20021217, end: 20030106
  2. RISPERIDONE [Suspect]
     Indication: DEMENTIA
     Dosage: 1 MG QD PO
     Route: 048
     Dates: start: 20011018, end: 20030106
  3. VALPROATE SODIUM [Concomitant]

REACTIONS (7)
  - AGGRESSION [None]
  - DELUSIONAL DISORDER, PERSECUTORY TYPE [None]
  - FALL [None]
  - FEMORAL NECK FRACTURE [None]
  - PERSONALITY DISORDER [None]
  - RESTLESSNESS [None]
  - SUICIDAL IDEATION [None]
